FAERS Safety Report 16892882 (Version 1)
Quarter: 2019Q4

REPORT INFORMATION
  Report Type: Report from Study
  Country: None (occurrence: US)
  Receive Date: 20191007
  Receipt Date: 20191007
  Transmission Date: 20200122
  Serious: Yes (Other)
  Sender: FDA-Public Use
  Company Number: US-ABBVIE-19K-163-2949960-00

PATIENT
  Age: 30 Year
  Sex: Female
  Weight: 54 kg

DRUGS (3)
  1. NORCO [Concomitant]
     Active Substance: ACETAMINOPHEN\HYDROCODONE BITARTRATE
     Indication: PAIN
  2. ORILISSA [Suspect]
     Active Substance: ELAGOLIX SODIUM
     Indication: ENDOMETRIOSIS
     Route: 048
  3. TOPAMAX [Concomitant]
     Active Substance: TOPIRAMATE
     Indication: PRODUCT USED FOR UNKNOWN INDICATION
     Dosage: QHS (TAKING FOR 1 WEEK FOR WORSENING AND CHANGE IN HEADACHES) FOR 2-3 MONTH FROM REPORTING
     Dates: start: 201907

REACTIONS (5)
  - Migraine [Unknown]
  - Cerebrospinal fluid retention [Not Recovered/Not Resolved]
  - Tension headache [Unknown]
  - Motion sickness [Unknown]
  - Eye pain [Unknown]

NARRATIVE: CASE EVENT DATE: 2012
